FAERS Safety Report 10201658 (Version 4)
Quarter: 2014Q2

REPORT INFORMATION
  Report Type: Report from Study
  Country: US (occurrence: US)
  Receive Date: 20140528
  Receipt Date: 20140612
  Transmission Date: 20141212
  Serious: Yes (Death, Hospitalization)
  Sender: FDA-Public Use
  Company Number: US-AMGEN INC.-USANI2014019082

PATIENT
  Age: 81 Year
  Sex: Female

DRUGS (22)
  1. DENOSUMAB [Suspect]
     Indication: OSTEOPOROSIS POSTMENOPAUSAL
     Dosage: 60 MG, Q6MO
     Route: 058
     Dates: start: 20120202, end: 20130813
  2. CARDIZEM                           /00489701/ [Concomitant]
     Indication: TACHYCARDIA
     Dosage: 20 MG, QD
     Route: 048
     Dates: start: 2002, end: 201312
  3. COUMADIN                           /00014802/ [Concomitant]
     Indication: TRICUSPID VALVE REPAIR
     Dosage: UNK UNK, AS NECESSARY
     Route: 048
     Dates: start: 2002, end: 201312
  4. COUMADIN                           /00014802/ [Concomitant]
     Indication: MITRAL VALVE REPLACEMENT
  5. ZOCOR [Concomitant]
     Indication: HYPERCHOLESTEROLAEMIA
     Dosage: 20 MG, QD
     Route: 048
     Dates: start: 2008, end: 2013
  6. ZEBETA [Concomitant]
     Indication: HYPERTENSION
     Dosage: 10 MG, QD
     Route: 048
     Dates: start: 1998, end: 201312
  7. METFORMIN [Concomitant]
     Indication: DIABETES MELLITUS
     Dosage: 500 MG, BID
     Route: 048
     Dates: start: 2009
  8. FERROUS SULFATE [Concomitant]
     Indication: ANAEMIA
     Dosage: 1 DF, QD
     Route: 048
     Dates: start: 2010
  9. MTV [Concomitant]
     Indication: SUPPLEMENTATION THERAPY
     Dosage: 1 DF, QD
     Route: 048
     Dates: start: 2000
  10. FLAX SEED OIL [Concomitant]
     Indication: SUPPLEMENTATION THERAPY
     Dosage: 2 DF, QD
     Route: 048
     Dates: start: 2000
  11. CALCIUM [Concomitant]
     Indication: SUPPLEMENTATION THERAPY
     Dosage: 2 DF, QD
     Route: 048
     Dates: start: 2000
  12. CRANBERRY                          /01512301/ [Concomitant]
     Indication: SUPPLEMENTATION THERAPY
     Dosage: 1 DF, QD
     Route: 048
     Dates: start: 201205
  13. ULTRAM                             /00599202/ [Concomitant]
     Indication: OSTEOPOROSIS
     Dosage: 50 MG, QD, 2 TABS
     Route: 048
     Dates: start: 201206
  14. PRILOSEC                           /00661201/ [Concomitant]
     Indication: HYPERMETROPIA
     Dosage: 20 MG, QD
     Route: 048
     Dates: start: 201205
  15. ARICEPT [Concomitant]
     Dosage: 10 MG, QD
  16. LASIX                              /00032601/ [Concomitant]
     Dosage: 20 MG, QD
  17. SYNTHROID [Concomitant]
     Dosage: 25 MUG, QD
     Route: 042
     Dates: start: 20131210, end: 20131211
  18. ATROVENT [Concomitant]
     Dosage: Q4H, AS NECESSARY
  19. COLACE [Concomitant]
     Dosage: UNK UNK, AS NECESSARY
  20. MILK OF MAGNESIA [Concomitant]
     Dosage: UNK UNK, AS NECESSARY
  21. HYDROXYZINE [Concomitant]
     Dosage: BID, AS NECESSARY
  22. ALBUTEROL                          /00139501/ [Concomitant]
     Dosage: Q4H, AS NECESSARY

REACTIONS (9)
  - Acute myocardial infarction [Fatal]
  - Hypothermia [Recovered/Resolved]
  - Hypothyroidism [Recovered/Resolved]
  - Congestive cardiomyopathy [Recovered/Resolved]
  - Cardiac failure congestive [Recovered/Resolved]
  - Abdominal pain [Recovered/Resolved]
  - Dyspnoea [Recovered/Resolved]
  - Atrial fibrillation [Recovered/Resolved]
  - Hypotension [Recovered/Resolved]
